FAERS Safety Report 5448482-0 (Version None)
Quarter: 2007Q3

REPORT INFORMATION
  Report Type: 
  Country: None (occurrence: None)
  Receive Date: 20070911
  Receipt Date: 20070830
  Transmission Date: 20080115
  Serious: Yes (Hospitalization, Other)
  Sender: FDA-Public Use
  Company Number: US-ELI_LILLY_AND_COMPANY-US200706005263

PATIENT
  Age: 65 Year
  Sex: Female

DRUGS (2)
  1. FORTEO [Suspect]
     Dosage: UNK, UNK
     Dates: start: 20050512, end: 20060327
  2. FORTEO [Suspect]
     Dosage: UNK, UNK
     Dates: start: 20061022

REACTIONS (4)
  - DIARRHOEA [None]
  - EMOTIONAL DISTRESS [None]
  - OVARIAN EPITHELIAL CANCER [None]
  - VOMITING [None]
